FAERS Safety Report 16689042 (Version 2)
Quarter: 2019Q3

REPORT INFORMATION
  Report Type: Spontaneous
  Country: GE (occurrence: GE)
  Receive Date: 20190809
  Receipt Date: 20190828
  Transmission Date: 20191004
  Serious: Yes (Hospitalization, Other)
  Sender: FDA-Public Use
  Company Number: GE-ROCHE-2361896

PATIENT

DRUGS (1)
  1. ACTEMRA [Suspect]
     Active Substance: TOCILIZUMAB
     Indication: STILL^S DISEASE
     Dosage: 12MG/KG WIGHT, INTRAVENOUS INFUSION 150 MG-2 TIMES PER WEEK
     Route: 042
     Dates: start: 20180402, end: 20190719

REACTIONS (10)
  - Blood pressure measurement [Unknown]
  - Dysphagia [Recovered/Resolved]
  - Bradycardia [Recovered/Resolved]
  - Hypersensitivity [Recovered/Resolved]
  - Cough [Unknown]
  - Dyspnoea [Recovered/Resolved]
  - Hypersensitivity [Unknown]
  - Tachycardia [Unknown]
  - Cough [Recovered/Resolved]
  - Pallor [Recovered/Resolved]
